FAERS Safety Report 23590226 (Version 1)
Quarter: 2024Q1

REPORT INFORMATION
  Report Type: Spontaneous
  Country: GB (occurrence: GB)
  Receive Date: 20240304
  Receipt Date: 20240304
  Transmission Date: 20240410
  Serious: Yes (Hospitalization)
  Sender: FDA-Public Use
  Company Number: GB-BAYER-2024A025466

PATIENT
  Age: 53 Year
  Sex: Male

DRUGS (1)
  1. CIPROFLOXACIN [Suspect]
     Active Substance: CIPROFLOXACIN
     Indication: Product used for unknown indication
     Dosage: UNK
     Route: 065
     Dates: start: 20240202, end: 20240212

REACTIONS (1)
  - Tendon rupture [Not Recovered/Not Resolved]

NARRATIVE: CASE EVENT DATE: 20240214
